FAERS Safety Report 12169087 (Version 1)
Quarter: 2016Q1

REPORT INFORMATION
  Report Type: Spontaneous
  Country: US (occurrence: US)
  Receive Date: 20160310
  Receipt Date: 20160310
  Transmission Date: 20160526
  Serious: Yes (Other)
  Sender: FDA-Public Use
  Company Number: US-PFIZER INC-2016136419

PATIENT
  Sex: Female

DRUGS (1)
  1. PREMARIN [Suspect]
     Active Substance: ESTROGENS, CONJUGATED
     Dosage: UNK, ONCE A MONTH OR ONCE EVERY TWO MONTHS (USED VERY LITTLE)
     Dates: start: 201512

REACTIONS (7)
  - Abdominal pain [Unknown]
  - Vaginal haemorrhage [Recovered/Resolved with Sequelae]
  - Decreased appetite [Unknown]
  - Headache [Recovering/Resolving]
  - Vaginal odour [Not Recovered/Not Resolved]
  - Malaise [Unknown]
  - Insomnia [Unknown]

NARRATIVE: CASE EVENT DATE: 20151225
